FAERS Safety Report 6008533-1 (Version None)
Quarter: 2008Q4

REPORT INFORMATION
  Report Type: 
  Country: None (occurrence: None)
  Receive Date: 20081217
  Receipt Date: 20081210
  Transmission Date: 20090506
  Serious: Yes (Other)
  Sender: FDA-Public Use
  Company Number: FR-WATSON-2008-07261

PATIENT
  Age: 12 Year
  Sex: Female

DRUGS (3)
  1. PREDNISONE TAB [Suspect]
     Indication: LUNG TRANSPLANT
     Dosage: 25 MG, DAILY
     Route: 048
  2. PROGRAF [Concomitant]
     Indication: LUNG TRANSPLANT
     Dosage: 4 MG, BID
  3. CELLCEPT [Concomitant]
     Indication: LUNG TRANSPLANT
     Dosage: 1 G, BID

REACTIONS (1)
  - EPIDURAL LIPOMATOSIS [None]
